FAERS Safety Report 23596280 (Version 1)
Quarter: 2024Q1

REPORT INFORMATION
  Report Type: Spontaneous
  Country: US (occurrence: None)
  Receive Date: 20240304
  Receipt Date: 20240304
  Transmission Date: 20240409
  Serious: Yes (Other)
  Sender: FDA-Public Use
  Company Number: None

PATIENT
  Age: 36 Year
  Sex: Female
  Weight: 66.6 kg

DRUGS (3)
  1. SOLU-MEDROL [Suspect]
     Active Substance: METHYLPREDNISOLONE SODIUM SUCCINATE
     Indication: Myasthenia gravis
     Dosage: FREQUENCY : MONTHLY;?
     Route: 042
     Dates: start: 20240223
  2. Diphenhydramine 50 MG [Concomitant]
  3. ACETAMINOPHEN [Concomitant]
     Active Substance: ACETAMINOPHEN

REACTIONS (6)
  - Nausea [None]
  - Tremor [None]
  - Blood pressure increased [None]
  - Therapy interrupted [None]
  - Premedication [None]
  - Infusion related reaction [None]

NARRATIVE: CASE EVENT DATE: 20240223
